FAERS Safety Report 7825383-1 (Version None)
Quarter: 2011Q4

REPORT INFORMATION
  Report Type: 
  Country: None (occurrence: None)
  Receive Date: 20111012
  Receipt Date: 20111003
  Transmission Date: 20120403
  Serious: Yes (Disabling)
  Sender: FDA-Public Use
  Company Number: AEGBR201100216

PATIENT
  Age: 28 Year
  Sex: Female

DRUGS (2)
  1. PROLASTIN [Suspect]
     Indication: ALPHA-1 ANTI-TRYPSIN DEFICIENCY
     Dosage: 40 ML;QOW;IV
     Route: 042
     Dates: start: 20050101
  2. PROLASTIN [Suspect]
     Indication: PANNICULITIS
     Dosage: 40 ML;QOW;IV
     Route: 042
     Dates: start: 20050101

REACTIONS (4)
  - DIZZINESS [None]
  - COORDINATION ABNORMAL [None]
  - INCORRECT DRUG ADMINISTRATION RATE [None]
  - DYSPHEMIA [None]
